FAERS Safety Report 5139921-3 (Version None)
Quarter: 2006Q4

REPORT INFORMATION
  Report Type: 
  Country: None (occurrence: None)
  Receive Date: 20061031
  Receipt Date: 20061023
  Transmission Date: 20070319
  Serious: Yes (Death, Hospitalization, Other)
  Sender: FDA-Public Use
  Company Number: US-ELI_LILLY_AND_COMPANY-US200610004262

PATIENT
  Age: 64 Year
  Sex: Male
  Weight: 77.097 kg

DRUGS (1)
  1. ZYPREXA [Suspect]
     Dates: start: 19990101, end: 20030101

REACTIONS (6)
  - DEATH [None]
  - DIABETES MELLITUS [None]
  - DIABETIC COMA [None]
  - DIABETIC KETOACIDOSIS [None]
  - RENAL DISORDER [None]
  - TRANSPLANT [None]
